FAERS Safety Report 6687278-9 (Version None)
Quarter: 2010Q2

REPORT INFORMATION
  Report Type: 
  Country: None (occurrence: None)
  Receive Date: 20100415
  Receipt Date: 20100330
  Transmission Date: 20101027
  Serious: Yes (Other)
  Sender: FDA-Public Use
  Company Number: LMI-2010-00244

PATIENT
  Age: 60 Year
  Sex: Female

DRUGS (1)
  1. DEFINITY [Suspect]
     Dosage: INTRAVENOUS BOLUS
     Route: 040

REACTIONS (1)
  - PRESYNCOPE [None]
